FAERS Safety Report 8832984 (Version 1)
Quarter: 2012Q4

REPORT INFORMATION
  Report Type: Spontaneous
  Country: US (occurrence: None)
  Receive Date: 20121009
  Receipt Date: 20121009
  Transmission Date: 20130627
  Serious: Yes (Other)
  Sender: FDA-Public Use
  Company Number: None

PATIENT
  Age: 60 Year
  Sex: Male
  Weight: 83.92 kg

DRUGS (6)
  1. LISTERINE (UNSPECIFIED) [Suspect]
     Indication: BREATH ODOUR
     Dosage: 2 dose(s), 3 in 1 week, oral
     Route: 048
  2. FELODIPINE [Concomitant]
  3. METOPROLOL [Concomitant]
  4. BENAZEPRIL [Concomitant]
  5. EFFIENT [Concomitant]
  6. METFORMIN [Concomitant]

REACTIONS (1)
  - Heart rate irregular [None]
